FAERS Safety Report 17824686 (Version 4)
Quarter: 2020Q3

REPORT INFORMATION
  Report Type: Spontaneous
  Country: US (occurrence: US)
  Receive Date: 20200526
  Receipt Date: 20200707
  Transmission Date: 20201102
  Serious: No
  Sender: FDA-Public Use
  Company Number: US-JNJFOC-20200524485

PATIENT
  Age: 64 Year
  Sex: Female

DRUGS (2)
  1. STELARA [Suspect]
     Active Substance: USTEKINUMAB
  2. STELARA [Suspect]
     Active Substance: USTEKINUMAB
     Indication: CROHN^S DISEASE
     Route: 058

REACTIONS (2)
  - Drug delivery system malfunction [Unknown]
  - Underdose [Unknown]

NARRATIVE: CASE EVENT DATE: 20200516
